FAERS Safety Report 22330029 (Version 1)
Quarter: 2023Q2

REPORT INFORMATION
  Report Type: Spontaneous
  Country: US (occurrence: None)
  Receive Date: 20230517
  Receipt Date: 20230517
  Transmission Date: 20230722
  Serious: No
  Sender: FDA-Public Use
  Company Number: US-ROCHE-3211112

PATIENT
  Sex: Female

DRUGS (1)
  1. ACTEMRA [Suspect]
     Active Substance: TOCILIZUMAB
     Indication: Rheumatoid arthritis
     Dosage: HAS BEEN RECEIVING ACTEMRA IV INFUSION OVER 60MIN FOR PAST 5 YEARS
     Route: 042
     Dates: start: 2017

REACTIONS (2)
  - Incorrect drug administration rate [Unknown]
  - Nausea [Not Recovered/Not Resolved]
